FAERS Safety Report 8321734-2 (Version None)
Quarter: 2012Q2

REPORT INFORMATION
  Report Type: 
  Country: None (occurrence: None)
  Receive Date: 20120426
  Receipt Date: 20120413
  Transmission Date: 20120825
  Serious: Yes (Hospitalization)
  Sender: FDA-Public Use
  Company Number: FK201201110

PATIENT
  Age: 94 Year
  Sex: Male

DRUGS (13)
  1. ENOXAPARIN SODIUM [Concomitant]
  2. FLUDROCORTISONE ACETATE [Concomitant]
  3. FUROSEMIDE [Concomitant]
  4. PIPERACILLIN AND TAZOBACTAM [Suspect]
     Indication: LOWER RESPIRATORY TRACT INFECTION
     Dates: start: 20120320, end: 20120326
  5. LOPERAMIDE [Concomitant]
  6. CLARITHROMYCIN [Concomitant]
  7. IPRATROPIUM BROMIDE [Concomitant]
  8. LANSOPRAZOLE [Concomitant]
  9. PHENYTOIN [Concomitant]
  10. BENZYLPENICILLIN (BENZYLPENICILLIN) [Concomitant]
  11. GENTAMICIN [Concomitant]
  12. HYDROCORITSONE (HYDROCORTISONE) [Concomitant]
  13. ACETAMINOPHEN [Concomitant]

REACTIONS (3)
  - PLATELET COUNT DECREASED [None]
  - LEUKOPENIA [None]
  - NEUTROPENIA [None]
